FAERS Safety Report 16235907 (Version 1)
Quarter: 2019Q2

REPORT INFORMATION
  Report Type: Report from Study
  Country: None (occurrence: TN)
  Receive Date: 20190425
  Receipt Date: 20190425
  Transmission Date: 20190711
  Serious: Yes (Other)
  Sender: FDA-Public Use
  Company Number: TN-ABBVIE-19K-160-2756368-00

PATIENT
  Age: 40 Year
  Sex: Female

DRUGS (2)
  1. JASMINE [Interacting]
     Active Substance: DROSPIRENONE\ETHINYL ESTRADIOL
     Indication: CONTRACEPTION
     Route: 065
  2. HUMIRA [Suspect]
     Active Substance: ADALIMUMAB
     Indication: CROHN^S DISEASE
     Route: 058
     Dates: start: 20170228, end: 201902

REACTIONS (6)
  - Pregnancy on contraceptive [Unknown]
  - Abdominal pain [Recovered/Resolved]
  - Post abortion haemorrhage [Recovered/Resolved]
  - Exposure during pregnancy [Unknown]
  - Inhibitory drug interaction [Unknown]
  - Abortion [Unknown]

NARRATIVE: CASE EVENT DATE: 201903
